FAERS Safety Report 8107840-6 (Version None)
Quarter: 2012Q1

REPORT INFORMATION
  Report Type: 
  Country: None (occurrence: None)
  Receive Date: 20120202
  Receipt Date: 20120125
  Transmission Date: 20120608
  Serious: Yes (Hospitalization, Other)
  Sender: FDA-Public Use
  Company Number: US-ROCHE-788592

PATIENT
  Sex: Male
  Weight: 79.45 kg

DRUGS (9)
  1. ACCUTANE [Suspect]
     Indication: ACNE
     Route: 065
     Dates: start: 19830101, end: 19840101
  2. ACCUTANE [Suspect]
     Route: 065
     Dates: start: 19840101, end: 19850101
  3. LORAZEPAM [Concomitant]
  4. XANAX [Concomitant]
  5. ATROPINE [Concomitant]
  6. PREDNISONE TAB [Concomitant]
  7. METRONIDAZOLE [Concomitant]
  8. ALPRAZOLAM [Concomitant]
  9. ASACOL [Concomitant]

REACTIONS (4)
  - COLITIS ULCERATIVE [None]
  - INFLAMMATORY BOWEL DISEASE [None]
  - INTESTINAL OBSTRUCTION [None]
  - EMOTIONAL DISTRESS [None]
